FAERS Safety Report 9319213 (Version 1)
Quarter: 2013Q2

REPORT INFORMATION
  Report Type: Spontaneous
  Country: US (occurrence: US)
  Receive Date: 20130530
  Receipt Date: 20130530
  Transmission Date: 20140414
  Serious: No
  Sender: FDA-Public Use
  Company Number: US-NOVEN-13US006203

PATIENT
  Age: 13 Year
  Sex: Male

DRUGS (2)
  1. DAYTRANA [Suspect]
     Indication: ATTENTION DEFICIT/HYPERACTIVITY DISORDER
     Dosage: 10MG AND 15MG, QD
     Route: 062
     Dates: start: 2007
  2. DAYTRANA [Suspect]
     Indication: OPPOSITIONAL DEFIANT DISORDER

REACTIONS (6)
  - Dermatillomania [Not Recovered/Not Resolved]
  - Nervousness [Not Recovered/Not Resolved]
  - Application site pruritus [Not Recovered/Not Resolved]
  - Application site erythema [Not Recovered/Not Resolved]
  - Wrong technique in drug usage process [Not Recovered/Not Resolved]
  - Product quality issue [Recovered/Resolved]
